FAERS Safety Report 5339977-9 (Version None)
Quarter: 2007Q2

REPORT INFORMATION
  Report Type: 
  Country: None (occurrence: None)
  Receive Date: 20070529
  Receipt Date: 20070516
  Transmission Date: 20071010
  Serious: Yes (Other)
  Sender: FDA-Public Use
  Company Number: TPA2007A01023

PATIENT
  Sex: Male

DRUGS (1)
  1. ACTOS [Suspect]
     Dosage: 30 MG, 1 IN 1 D, PER ORAL
     Route: 048

REACTIONS (1)
  - MACULAR OEDEMA [None]
